FAERS Safety Report 24736360 (Version 2)
Quarter: 2025Q1

REPORT INFORMATION
  Report Type: Report from Study
  Country: GB (occurrence: GB)
  Receive Date: 20241216
  Receipt Date: 20250319
  Transmission Date: 20250408
  Serious: Yes (Other)
  Sender: EMD SERONO INC
  Company Number: GB-Merck Healthcare KGaA-2024060733

PATIENT
  Sex: Female

DRUGS (1)
  1. MAVENCLAD [Suspect]
     Active Substance: CLADRIBINE
     Indication: Multiple sclerosis
     Dates: start: 20241104

REACTIONS (13)
  - Lower respiratory tract infection viral [Unknown]
  - Nasopharyngitis [Recovering/Resolving]
  - Oropharyngeal pain [Recovering/Resolving]
  - Fatigue [Not Recovered/Not Resolved]
  - Headache [Unknown]
  - Bronchiectasis [Unknown]
  - Condition aggravated [Unknown]
  - Lymphocyte count decreased [Unknown]
  - Back pain [Unknown]
  - Asthenia [Recovering/Resolving]
  - Malaise [Unknown]
  - Urinary tract infection [Unknown]
  - Drug ineffective [Unknown]
